FAERS Safety Report 25873914 (Version 1)
Quarter: 2025Q4

REPORT INFORMATION
  Report Type: Spontaneous
  Country: US (occurrence: None)
  Receive Date: 20251002
  Receipt Date: 20251002
  Transmission Date: 20260117
  Serious: Yes (Other)
  Sender: FDA-CTU
  Company Number: None

PATIENT
  Age: 37 Year
  Sex: Female
  Weight: 117 kg

DRUGS (2)
  1. INFED [Suspect]
     Active Substance: IRON DEXTRAN
     Indication: Iron deficiency anaemia
     Dosage: FREQUENCY : ONCE;?
     Route: 042
     Dates: start: 20250924, end: 20250924
  2. Ferrous Sulfate 325 mg PO daily [Concomitant]

REACTIONS (5)
  - Oropharyngeal pain [None]
  - Throat irritation [None]
  - Dysphagia [None]
  - Feeling abnormal [None]
  - Drug hypersensitivity [None]

NARRATIVE: CASE EVENT DATE: 20250924
